FAERS Safety Report 7524370-0 (Version None)
Quarter: 2011Q2

REPORT INFORMATION
  Report Type: 
  Country: None (occurrence: None)
  Receive Date: 20110606
  Receipt Date: 20090204
  Transmission Date: 20111010
  Serious: No
  Sender: FDA-Public Use
  Company Number: 2009BI004035

PATIENT
  Age: 55 Year
  Sex: Female

DRUGS (2)
  1. TYSABRI [Suspect]
     Indication: MULTIPLE SCLEROSIS
     Route: 042
     Dates: start: 20081208, end: 20090806
  2. TYSABRI [Suspect]
     Route: 042
     Dates: start: 20091008

REACTIONS (5)
  - HEADACHE [None]
  - MYALGIA [None]
  - DRUG EFFECT DECREASED [None]
  - NAUSEA [None]
  - FATIGUE [None]
